FAERS Safety Report 21591962 (Version 1)
Quarter: 2022Q4

REPORT INFORMATION
  Report Type: Report from Study
  Country: GB (occurrence: None)
  Receive Date: 20221114
  Receipt Date: 20221114
  Transmission Date: 20230112
  Serious: Yes (Death)
  Sender: FDA-Public Use
  Company Number: 2022A373656

PATIENT
  Age: 62 Year
  Sex: Female

DRUGS (15)
  1. FULVESTRANT [Suspect]
     Active Substance: FULVESTRANT
     Indication: Breast cancer metastatic
     Dosage: 500
     Route: 030
     Dates: start: 20180725, end: 20190109
  2. DOCETAXEL [Suspect]
     Active Substance: DOCETAXEL
     Indication: Breast cancer metastatic
     Dosage: 140
     Route: 042
     Dates: start: 20150507, end: 20150520
  3. PERTUZUMAB\TRASTUZUMAB [Suspect]
     Active Substance: PERTUZUMAB\TRASTUZUMAB
     Indication: Breast cancer metastatic
     Dosage: SUBSEQUENT DOSE ON 420 MG (EVERY THREE WEEK) OF PERTUJUMAB ON 28/MAY/2015- 840
     Route: 042
     Dates: start: 20150506
  4. PERTUZUMAB\TRASTUZUMAB [Suspect]
     Active Substance: PERTUZUMAB\TRASTUZUMAB
     Indication: Breast cancer metastatic
     Dosage: SUBSEQUENT DOSE (483 MG, EVERY 3 WEEKS) OF TRASTUZUMAB ON 28/MAY/2015. UNKNOWN DOSE (THREE TIMES ...
     Route: 042
     Dates: start: 20150507, end: 20150507
  5. ERIBULIN [Suspect]
     Active Substance: ERIBULIN
     Indication: Breast cancer metastatic
     Dosage: DAY 1 AND 8 OF 3 WEEKLY CYCLE- 1.2
     Route: 042
     Dates: start: 20171024, end: 20180614
  6. ADO-TRASTUZUMAB EMTANSINE [Suspect]
     Active Substance: ADO-TRASTUZUMAB EMTANSINE
     Indication: Breast cancer metastatic
     Dosage: 285
     Route: 042
     Dates: start: 20161215, end: 20170608
  7. DALTEPARIN [Concomitant]
     Active Substance: DALTEPARIN
     Route: 058
     Dates: start: 20160427, end: 20160505
  8. DEXAMETHASONE [Concomitant]
     Active Substance: DEXAMETHASONE
     Indication: Metastases to central nervous system
     Dosage: 1
     Route: 048
     Dates: start: 20150322
  9. EPILIM [Concomitant]
     Active Substance: VALPROATE SODIUM
     Dosage: 300
     Route: 048
     Dates: start: 20150322
  10. FUROSEMIDE [Concomitant]
     Active Substance: FUROSEMIDE
     Dosage: 40
     Route: 048
  11. HYDROCORTISONE [Concomitant]
     Active Substance: HYDROCORTISONE
     Dosage: 5
     Route: 048
  12. TRASTUZUMAB [Suspect]
     Active Substance: TRASTUZUMAB
     Dates: start: 20171024
  13. HYALURONIDASE (HUMAN RECOMBINANT) [Suspect]
     Active Substance: HYALURONIDASE (HUMAN RECOMBINANT)
     Dates: start: 20150506
  14. CARBOPLATIN [Suspect]
     Active Substance: CARBOPLATIN
     Dates: start: 20150507
  15. DOCETAXEL [Suspect]
     Active Substance: DOCETAXEL
     Dates: start: 20150507

REACTIONS (1)
  - Death [Fatal]

NARRATIVE: CASE EVENT DATE: 20190522
